FAERS Safety Report 16933161 (Version 2)
Quarter: 2019Q4

REPORT INFORMATION
  Report Type: Spontaneous
  Country: US (occurrence: US)
  Receive Date: 20191018
  Receipt Date: 20191118
  Transmission Date: 20200122
  Serious: Yes (Death, Other)
  Sender: FDA-Public Use
  Company Number: US-009507513-1910USA010692

PATIENT
  Age: 61 Year
  Sex: Male

DRUGS (1)
  1. TEMODAR [Suspect]
     Active Substance: TEMOZOLOMIDE
     Indication: GLIOBLASTOMA
     Dosage: UNK
     Route: 048

REACTIONS (1)
  - B-cell type acute leukaemia [Fatal]
